FAERS Safety Report 8923335 (Version 2)
Quarter: 2013Q1

REPORT INFORMATION
  Report Type: Spontaneous
  Country: US (occurrence: US)
  Receive Date: 20121124
  Receipt Date: 20130129
  Transmission Date: 20140127
  Serious: Yes (Death, Hospitalization)
  Sender: FDA-Public Use
  Company Number: PHEH2012US022922

PATIENT
  Age: 82 Year
  Sex: Male
  Weight: 50.9 kg

DRUGS (2)
  1. AFINITOR [Suspect]
     Indication: METASTATIC RENAL CELL CARCINOMA
     Dosage: UNK
     Route: 048
     Dates: start: 20120709, end: 20121010
  2. RELAFEN [Concomitant]
     Indication: HYPERTENSION
     Dosage: 8 MG, DAILY
     Route: 048
     Dates: start: 20120305

REACTIONS (3)
  - Metastatic renal cell carcinoma [Fatal]
  - Malignant neoplasm progression [Fatal]
  - Asthenia [Unknown]
